FAERS Safety Report 4478450-7 (Version None)
Quarter: 2004Q4

REPORT INFORMATION
  Report Type: 
  Country: None (occurrence: None)
  Receive Date: 20041018
  Receipt Date: 20041018
  Transmission Date: 20050328
  Serious: Yes (Hospitalization)
  Sender: FDA-Public Use
  Company Number: None

PATIENT
  Age: 85 Year
  Sex: Male
  Weight: 71 kg

DRUGS (2)
  1. BEXTRA [Suspect]
     Indication: LOCALISED OSTEOARTHRITIS
     Dosage: 20MG QD ORAL
     Route: 048
     Dates: start: 20040623, end: 20040629
  2. BEXTRA [Suspect]
     Indication: SPINAL OSTEOARTHRITIS
     Dosage: 20MG QD ORAL
     Route: 048
     Dates: start: 20040623, end: 20040629

REACTIONS (5)
  - ERYTHEMA MULTIFORME [None]
  - HEADACHE [None]
  - PALATAL DISORDER [None]
  - PETECHIAE [None]
  - TACHYCARDIA [None]
